FAERS Safety Report 12530370 (Version 1)
Quarter: 2016Q3

REPORT INFORMATION
  Report Type: Spontaneous
  Country: US (occurrence: None)
  Receive Date: 20160705
  Receipt Date: 20160705
  Transmission Date: 20161109
  Serious: No
  Sender: FDA-Public Use
  Company Number: None

PATIENT
  Age: 52 Year
  Sex: Female
  Weight: 61.24 kg

DRUGS (7)
  1. EPIPEN [Concomitant]
     Active Substance: EPINEPHRINE
  2. BIOTIN [Concomitant]
     Active Substance: BIOTIN
  3. CLARITIN [Concomitant]
     Active Substance: LORATADINE
  4. RESTASIS [Suspect]
     Active Substance: CYCLOSPORINE
     Indication: DRY EYE
     Route: 047
     Dates: start: 20160601, end: 20160608
  5. RESCUE INHALERS [Concomitant]
     Active Substance: UNSPECIFIED INGREDIENT
  6. NASONEX [Concomitant]
     Active Substance: MOMETASONE FUROATE
  7. VITAMIN D [Concomitant]
     Active Substance: CHOLECALCIFEROL

REACTIONS (5)
  - Eye pain [None]
  - Blepharospasm [None]
  - Rash [None]
  - Hypersensitivity [None]
  - Inflammation of lacrimal passage [None]

NARRATIVE: CASE EVENT DATE: 20160609
